FAERS Safety Report 5898323-2 (Version None)
Quarter: 2008Q3

REPORT INFORMATION
  Report Type: 
  Country: None (occurrence: None)
  Receive Date: 20080925
  Receipt Date: 20070906
  Transmission Date: 20090109
  Serious: No
  Sender: FDA-Public Use
  Company Number: A0681559A

PATIENT
  Sex: Female

DRUGS (2)
  1. WELLBUTRIN XL [Suspect]
     Indication: SEASONAL AFFECTIVE DISORDER
     Dosage: 150MG PER DAY
     Route: 048
     Dates: start: 20060101
  2. WELLBUTRIN SR [Suspect]
     Indication: SEASONAL AFFECTIVE DISORDER
     Dosage: 100MG PER DAY
     Route: 048

REACTIONS (7)
  - DISTURBANCE IN SEXUAL AROUSAL [None]
  - IRRITABILITY [None]
  - LIBIDO INCREASED [None]
  - MOOD ALTERED [None]
  - NAUSEA [None]
  - THERAPEUTIC RESPONSE INCREASED [None]
  - THERAPEUTIC RESPONSE UNEXPECTED [None]
